FAERS Safety Report 9979033 (Version 1)
Quarter: 2014Q1

REPORT INFORMATION
  Report Type: Report from Study
  Country: US (occurrence: US)
  Receive Date: 20140306
  Receipt Date: 20140306
  Transmission Date: 20141002
  Serious: Yes (Hospitalization)
  Sender: FDA-Public Use
  Company Number: US-ABBVIE-13P-163-1170275-00

PATIENT
  Sex: Female
  Weight: 64.47 kg

DRUGS (6)
  1. HUMIRA [Suspect]
     Indication: PSORIASIS
     Dates: start: 201212
  2. SIMVASTATIN [Concomitant]
     Indication: BLOOD CHOLESTEROL INCREASED
  3. WARFARIN [Concomitant]
     Indication: ANTICOAGULANT THERAPY
  4. XANAX [Concomitant]
     Indication: ANXIETY
  5. TYLENOL [Concomitant]
     Indication: PAIN
  6. CLOBETASOL [Concomitant]
     Indication: PRODUCT USED FOR UNKNOWN INDICATION

REACTIONS (6)
  - Hypertension [Unknown]
  - Heart rate increased [Unknown]
  - Psoriasis [Not Recovered/Not Resolved]
  - Atrial fibrillation [Unknown]
  - Magnesium deficiency [Unknown]
  - Back pain [Unknown]
